FAERS Safety Report 24140593 (Version 4)
Quarter: 2025Q3

REPORT INFORMATION
  Report Type: Spontaneous
  Country: EU (occurrence: EU)
  Receive Date: 20240726
  Receipt Date: 20250923
  Transmission Date: 20251020
  Serious: Yes (Hospitalization)
  Sender: UCB
  Company Number: None

PATIENT
  Age: 26 Year
  Sex: Male

DRUGS (18)
  1. LACOSAMIDE [Interacting]
     Active Substance: LACOSAMIDE
     Indication: Product used for unknown indication
     Dosage: 100 MILLIGRAM, 2X/DAY (BID)
     Dates: start: 20240603
  2. LACOSAMIDE [Interacting]
     Active Substance: LACOSAMIDE
     Dosage: 100 MILLIGRAM, 2X/DAY (BID)
  3. LACOSAMIDE [Interacting]
     Active Substance: LACOSAMIDE
     Dosage: 50 MILLIGRAM, 2X/DAY (BID)
  4. LACOSAMIDE [Interacting]
     Active Substance: LACOSAMIDE
     Dosage: 100 MILLIGRAM, 2X/DAY (BID) (100-0-100 MG))
     Dates: start: 20240724
  5. BRIVIACT [Suspect]
     Active Substance: BRIVARACETAM
     Indication: Epilepsy
  6. BRIVIACT [Suspect]
     Active Substance: BRIVARACETAM
  7. CENOBAMATE [Interacting]
     Active Substance: CENOBAMATE
     Indication: Epilepsy
     Dosage: 50 MILLIGRAM, ONCE DAILY (QD)
     Route: 048
     Dates: start: 20240603
  8. CENOBAMATE [Interacting]
     Active Substance: CENOBAMATE
     Dosage: 200 MILLIGRAM, ONCE DAILY (QD)
     Route: 048
  9. CENOBAMATE [Interacting]
     Active Substance: CENOBAMATE
     Dosage: 250 MILLIGRAM, ONCE DAILY (QD)
     Route: 048
  10. CENOBAMATE [Interacting]
     Active Substance: CENOBAMATE
     Dosage: 300 MILLIGRAM, ONCE DAILY (QD)
     Route: 048
  11. CENOBAMATE [Interacting]
     Active Substance: CENOBAMATE
     Dosage: 225 MILLIGRAM, ONCE DAILY (QD)
     Route: 048
     Dates: start: 20250411
  12. CENOBAMATE [Interacting]
     Active Substance: CENOBAMATE
     Dosage: 212.5 MILLIGRAM, ONCE DAILY (QD)
     Route: 048
     Dates: start: 20250411
  13. CLOBAZAM [Interacting]
     Active Substance: CLOBAZAM
     Indication: Product used for unknown indication
  14. CLOBAZAM [Interacting]
     Active Substance: CLOBAZAM
  15. VALPROIC ACID [Suspect]
     Active Substance: VALPROIC ACID
     Indication: Product used for unknown indication
     Dosage: 300-0-300
  16. ESLICARBAZEPINE ACETATE [Suspect]
     Active Substance: ESLICARBAZEPINE ACETATE
     Indication: Epilepsy
  17. CANNABIDIOL [Suspect]
     Active Substance: CANNABIDIOL
     Indication: Epilepsy
  18. CANNABIDIOL [Suspect]
     Active Substance: CANNABIDIOL

REACTIONS (13)
  - Status epilepticus [Recovered/Resolved]
  - Weight decreased [Not Recovered/Not Resolved]
  - Seizure [Unknown]
  - Somnolence [Unknown]
  - Sluggishness [Not Recovered/Not Resolved]
  - Fatigue [Not Recovered/Not Resolved]
  - Asthenia [Not Recovered/Not Resolved]
  - Decreased appetite [Not Recovered/Not Resolved]
  - Drug interaction [Not Recovered/Not Resolved]
  - Nausea [Recovered/Resolved]
  - Vomiting [Not Recovered/Not Resolved]
  - Constipation [Not Recovered/Not Resolved]
  - Off label use [Unknown]

NARRATIVE: CASE EVENT DATE: 20240603
